FAERS Safety Report 7584326-9 (Version None)
Quarter: 2011Q2

REPORT INFORMATION
  Report Type: 
  Country: None (occurrence: None)
  Receive Date: 20110630
  Receipt Date: 20110621
  Transmission Date: 20111010
  Serious: Yes (Hospitalization)
  Sender: FDA-Public Use
  Company Number: US-JNJFOC-20110611971

PATIENT
  Sex: Male
  Weight: 45.36 kg

DRUGS (6)
  1. MESALAMINE [Concomitant]
  2. BACTRIM [Concomitant]
  3. REMICADE [Suspect]
     Route: 042
     Dates: start: 20060308
  4. FERROUS SULFATE TAB [Concomitant]
  5. REMICADE [Suspect]
     Indication: INFLAMMATORY BOWEL DISEASE
     Route: 042
  6. REMICADE [Suspect]
     Route: 042
     Dates: start: 20080122

REACTIONS (3)
  - SMALL INTESTINAL OBSTRUCTION [None]
  - PELVIC ABSCESS [None]
  - PERIRECTAL ABSCESS [None]
